FAERS Safety Report 7429657-8 (Version None)
Quarter: 2011Q2

REPORT INFORMATION
  Report Type: 
  Country: None (occurrence: None)
  Receive Date: 20110421
  Receipt Date: 20110411
  Transmission Date: 20111010
  Serious: Yes (Other)
  Sender: FDA-Public Use
  Company Number: US-JNJFOC-20110406177

PATIENT
  Sex: Female
  Weight: 80.29 kg

DRUGS (23)
  1. FENTANYL-100 [Suspect]
     Route: 062
  2. FENTANYL CITRATE [Suspect]
     Indication: FIBROMYALGIA
     Route: 062
  3. SAVELLA [Concomitant]
     Indication: FIBROMYALGIA
     Route: 048
  4. METFORMIN HCL [Concomitant]
     Indication: DIABETES MELLITUS
     Route: 048
  5. KLONOPIN [Concomitant]
     Indication: ANXIETY
     Route: 048
  6. FENTANYL CITRATE [Suspect]
     Indication: BACK PAIN
     Route: 062
  7. OXYCODONE HCL [Suspect]
     Indication: FIBROMYALGIA
     Route: 048
  8. OXYCODONE HCL [Suspect]
     Indication: PAIN IN EXTREMITY
     Route: 048
  9. OXYCODONE HCL [Suspect]
     Indication: BACK PAIN
     Route: 048
  10. LYRICA [Concomitant]
     Indication: FIBROMYALGIA
     Route: 048
  11. FENTANYL CITRATE [Suspect]
     Indication: PAIN IN EXTREMITY
     Route: 062
  12. SYNTHROID [Concomitant]
     Indication: THYROID DISORDER
     Route: 048
  13. OMEPRAZOLE [Concomitant]
     Indication: GASTROOESOPHAGEAL REFLUX DISEASE
     Route: 048
  14. FENTANYL-100 [Suspect]
     Indication: PAIN IN EXTREMITY
     Route: 062
  15. FENTANYL-100 [Suspect]
     Route: 062
  16. FENTANYL-100 [Suspect]
     Route: 062
  17. DURAGESIC [Suspect]
     Indication: PRODUCT USED FOR UNKNOWN INDICATION
     Route: 062
  18. FENTANYL-100 [Suspect]
     Indication: BACK PAIN
     Route: 062
  19. HYDROCODONE BITARTRATE [Concomitant]
     Indication: BREAKTHROUGH PAIN
     Route: 048
  20. SIMVASTATIN [Concomitant]
     Indication: BLOOD CHOLESTEROL
     Route: 048
  21. FENTANYL-100 [Suspect]
     Indication: FIBROMYALGIA
     Route: 062
  22. HORMONE REPLACEMENT THERAPY PATCH, NOS [Concomitant]
     Indication: HORMONE REPLACEMENT THERAPY
     Route: 062
  23. ACTOS [Concomitant]
     Indication: DIABETES MELLITUS
     Route: 048

REACTIONS (5)
  - DIABETIC NEUROPATHY [None]
  - ADVERSE DRUG REACTION [None]
  - NERVE COMPRESSION [None]
  - JOINT EFFUSION [None]
  - FEELING ABNORMAL [None]
